FAERS Safety Report 24995243 (Version 1)
Quarter: 2025Q1

REPORT INFORMATION
  Report Type: Spontaneous
  Country: US (occurrence: US)
  Receive Date: 20250221
  Receipt Date: 20250221
  Transmission Date: 20250409
  Serious: Yes (Other)
  Sender: PFIZER
  Company Number: US-PFIZER INC-202500039786

PATIENT
  Age: 45 Year
  Sex: Male

DRUGS (2)
  1. MEKTOVI [Suspect]
     Active Substance: BINIMETINIB
  2. BRAFTOVI [Suspect]
     Active Substance: ENCORAFENIB

REACTIONS (2)
  - Facial operation [Unknown]
  - Biopsy lung [Unknown]
